FAERS Safety Report 20351179 (Version 2)
Quarter: 2022Q1

REPORT INFORMATION
  Report Type: Spontaneous
  Country: AT (occurrence: AT)
  Receive Date: 20220119
  Receipt Date: 20220121
  Transmission Date: 20220423
  Serious: Yes (Death, Other)
  Sender: FDA-Public Use
  Company Number: AT-GLAXOSMITHKLINE-AT2022EME007890

PATIENT
  Sex: Female

DRUGS (2)
  1. BLENREP [Suspect]
     Active Substance: BELANTAMAB MAFODOTIN-BLMF
     Indication: Product used for unknown indication
     Dosage: 2.5 MG/KG, Z (EVERY 3 WEEK)
     Dates: start: 202007
  2. DEXAMETHASONE [Suspect]
     Active Substance: DEXAMETHASONE
     Indication: Product used for unknown indication
     Dosage: 20 MG, WE
     Dates: start: 202007

REACTIONS (7)
  - Death [Fatal]
  - Polyneuropathy [Unknown]
  - Condition aggravated [Unknown]
  - Sleep disorder [Unknown]
  - Serology abnormal [Unknown]
  - Conjunctival oedema [Unknown]
  - Therapy cessation [Unknown]
